FAERS Safety Report 6637448-0 (Version None)
Quarter: 2010Q1

REPORT INFORMATION
  Report Type: 
  Country: None (occurrence: None)
  Receive Date: 20100311
  Receipt Date: 20100222
  Transmission Date: 20100710
  Serious: Yes (Congenital Anomaly, Other)
  Sender: FDA-Public Use
  Company Number: FR-001561

PATIENT

DRUGS (5)
  1. MENOPUR [Suspect]
     Indication: IN VITRO FERTILISATION
  2. DECAPEPTYL /00975902/ (DECAPEPTYL /00975902/) [Concomitant]
  3. TETRABID-ORGANON (TETABID-ORGANON) [Concomitant]
  4. UTROGESTAN (UTROGESTAN) [Concomitant]
  5. PROGESTERONE PHARION (PROGESTERONE PHARION) [Concomitant]

REACTIONS (3)
  - ABORTION INDUCED [None]
  - CONJOINED TWINS [None]
  - MATERNAL DRUGS AFFECTING FOETUS [None]
